FAERS Safety Report 24646241 (Version 3)
Quarter: 2025Q1

REPORT INFORMATION
  Report Type: Spontaneous
  Country: RO (occurrence: RO)
  Receive Date: 20241121
  Receipt Date: 20250107
  Transmission Date: 20250408
  Serious: Yes (Death, Hospitalization, Other)
  Sender: AMGEN
  Company Number: RO-ROCHE-10000122274

PATIENT
  Age: 76 Year
  Sex: Male

DRUGS (10)
  1. BEVACIZUMAB [Suspect]
     Active Substance: BEVACIZUMAB
     Indication: Hepatocellular carcinoma
     Dosage: 15 MILLIGRAM/KILOGRAM, Q3WK
     Route: 065
     Dates: start: 20221222, end: 20230404
  2. BEVACIZUMAB [Suspect]
     Active Substance: BEVACIZUMAB
     Dosage: UNK UNK, Q3WK
     Route: 065
     Dates: start: 20230529, end: 20230731
  3. BEVACIZUMAB [Suspect]
     Active Substance: BEVACIZUMAB
     Dosage: UNK UNK, Q3WK
     Route: 065
     Dates: start: 20231002
  4. BEVACIZUMAB [Suspect]
     Active Substance: BEVACIZUMAB
     Dosage: UNK UNK, Q3WK
     Route: 065
     Dates: start: 20231023, end: 20240202
  5. BEVACIZUMAB [Suspect]
     Active Substance: BEVACIZUMAB
     Dosage: UNK UNK, Q3WK
     Route: 065
     Dates: end: 20240530
  6. ATEZOLIZUMAB [Suspect]
     Active Substance: ATEZOLIZUMAB
     Indication: Hepatocellular carcinoma
     Dosage: 1200 MILLIGRAM, Q3WK
     Route: 065
     Dates: start: 20221222, end: 20230404
  7. ATEZOLIZUMAB [Suspect]
     Active Substance: ATEZOLIZUMAB
     Dosage: UNK UNK, Q3WK
     Route: 065
     Dates: start: 20230529, end: 20230731
  8. ATEZOLIZUMAB [Suspect]
     Active Substance: ATEZOLIZUMAB
     Dosage: UNK UNK, Q3WK
     Route: 065
     Dates: start: 20230911
  9. ATEZOLIZUMAB [Suspect]
     Active Substance: ATEZOLIZUMAB
     Dosage: UNK UNK, Q3WK
     Route: 065
     Dates: start: 20231023, end: 20240202
  10. ATEZOLIZUMAB [Suspect]
     Active Substance: ATEZOLIZUMAB
     Dosage: UNK UNK, Q3WK
     Route: 065
     Dates: end: 20240530

REACTIONS (9)
  - Death [Fatal]
  - Humerus fracture [Unknown]
  - Haemoptysis [Unknown]
  - Pleurisy [Unknown]
  - Metastases to bone [Unknown]
  - Asthenia [Unknown]
  - Blood creatinine increased [Unknown]
  - Back pain [Recovering/Resolving]
  - Off label use [Unknown]

NARRATIVE: CASE EVENT DATE: 20221222
